FAERS Safety Report 18501347 (Version 1)
Quarter: 2020Q4

REPORT INFORMATION
  Report Type: Spontaneous
  Country: BR (occurrence: BR)
  Receive Date: 20201113
  Receipt Date: 20201113
  Transmission Date: 20210114
  Serious: Yes (Other)
  Sender: FDA-Public Use
  Company Number: NVSC2020BR299659

PATIENT
  Age: 63 Year
  Sex: Male

DRUGS (5)
  1. OCTREOTIDE. [Suspect]
     Active Substance: OCTREOTIDE
  2. EVEROLIMUS. [Suspect]
     Active Substance: EVEROLIMUS
     Indication: PANCREATIC NEUROENDOCRINE TUMOUR
     Dosage: UNK
     Route: 065
     Dates: start: 20200122
  3. OCTREOTIDE. [Suspect]
     Active Substance: OCTREOTIDE
  4. LUTETIUM (LU 177) [Suspect]
     Active Substance: LUTETIUM LU-177
     Indication: PANCREATIC NEUROENDOCRINE TUMOUR
     Dosage: (EVERY 8 WEEKS)
     Route: 065
     Dates: start: 20170628, end: 20171116
  5. OCTREOTIDE. [Suspect]
     Active Substance: OCTREOTIDE
     Indication: PANCREATIC NEUROENDOCRINE TUMOUR
     Dosage: 30 MG
     Route: 065
     Dates: start: 20161027

REACTIONS (8)
  - Metastases to liver [Recovering/Resolving]
  - Hepatic lesion [Not Recovered/Not Resolved]
  - Duodenal stenosis [Unknown]
  - Gastric disorder [Unknown]
  - Intestinal obstruction [Unknown]
  - Arterial injury [Unknown]
  - Lung infiltration [Recovering/Resolving]
  - Abdominal distension [Unknown]

NARRATIVE: CASE EVENT DATE: 20200526
